FAERS Safety Report 7156174-5 (Version None)
Quarter: 2010Q4

REPORT INFORMATION
  Report Type: 
  Country: None (occurrence: None)
  Receive Date: 20101214
  Receipt Date: 20101206
  Transmission Date: 20110411
  Serious: Yes (Hospitalization)
  Sender: FDA-Public Use
  Company Number: SE-TEVA-259321ISR

PATIENT
  Sex: Female

DRUGS (1)
  1. DOXYCYCLINE [Suspect]
     Indication: ERYTHEMA MIGRANS
     Route: 048
     Dates: start: 20100903

REACTIONS (2)
  - HEADACHE [None]
  - VISUAL IMPAIRMENT [None]
